FAERS Safety Report 10532330 (Version 2)
Quarter: 2014Q4

REPORT INFORMATION
  Report Type: Spontaneous
  Country: US (occurrence: US)
  Receive Date: 20141021
  Receipt Date: 20141021
  Transmission Date: 20150529
  Serious: No
  Sender: FDA-Public Use
  Company Number: US-MYLANLABS-2014SP005188

PATIENT
  Sex: Female
  Weight: 42 kg

DRUGS (5)
  1. METHOTREXATE [Suspect]
     Active Substance: METHOTREXATE
     Indication: ARTHRITIS
     Dates: end: 201404
  2. METHOTREXATE [Suspect]
     Active Substance: METHOTREXATE
     Dates: start: 201408
  3. PREDNISONE. [Concomitant]
     Active Substance: PREDNISONE
  4. XELJANZ [Suspect]
     Active Substance: TOFACITINIB CITRATE
     Indication: PRODUCT USED FOR UNKNOWN INDICATION
     Dates: start: 201401
  5. MEDIZOLE [Concomitant]

REACTIONS (5)
  - C-reactive protein increased [Unknown]
  - Feeling abnormal [Unknown]
  - Inflammation [Unknown]
  - Haematocrit decreased [Unknown]
  - Blood urea nitrogen/creatinine ratio increased [Unknown]

NARRATIVE: CASE EVENT DATE: 2014
